FAERS Safety Report 5883740-7 (Version None)
Quarter: 2008Q3

REPORT INFORMATION
  Report Type: 
  Country: None (occurrence: None)
  Receive Date: 20080912
  Receipt Date: 20080912
  Transmission Date: 20090109
  Serious: Yes (Hospitalization)
  Sender: FDA-Public Use
  Company Number: None

PATIENT
  Age: 73 Year
  Sex: Female
  Weight: 85.9 kg

DRUGS (16)
  1. RISPERIDONE [Suspect]
     Indication: BIPOLAR DISORDER
     Dosage: 3MG PO QHS  : 1MG-2MG PO QHS
     Route: 048
     Dates: start: 20080226, end: 20080507
  2. RISPERIDONE [Suspect]
     Indication: BIPOLAR DISORDER
     Dosage: 3MG PO QHS  : 1MG-2MG PO QHS
     Route: 048
     Dates: start: 20080507
  3. ALENDRONATE SODIUM [Concomitant]
  4. LISINOPRIL [Concomitant]
  5. OMEPRAZOLE [Concomitant]
  6. ALBUTEROL [Concomitant]
  7. TRAVOPROST [Concomitant]
  8. LORAZEPAM [Concomitant]
  9. NITROGLYCERIN [Concomitant]
  10. ACETAMINOPHEN AND OXYCODONE HCL [Concomitant]
  11. TRAZODONE HCL [Concomitant]
  12. LASIX [Concomitant]
  13. ATENOLOL [Concomitant]
  14. ESTROGENIC SUBSTANCE [Concomitant]
  15. ASPIRIN [Concomitant]
  16. FLUNIS. [Concomitant]

REACTIONS (2)
  - CHEST PAIN [None]
  - MENTAL STATUS CHANGES [None]
